FAERS Safety Report 15222626 (Version 2)
Quarter: 2018Q3

REPORT INFORMATION
  Report Type: Spontaneous
  Country: US (occurrence: US)
  Receive Date: 20180731
  Receipt Date: 20180823
  Transmission Date: 20181010
  Serious: No
  Sender: FDA-Public Use
  Company Number: US-009507513-1807USA013091

PATIENT
  Age: 38 Year
  Sex: Female
  Weight: 54.88 kg

DRUGS (1)
  1. NEXPLANON [Suspect]
     Active Substance: ETONOGESTREL
     Dosage: 1 ROD/3 YEAR IMPLANT
     Route: 059
     Dates: start: 20160713, end: 201807

REACTIONS (3)
  - Complication associated with device [Unknown]
  - Pain in extremity [Unknown]
  - Liposuction [Unknown]

NARRATIVE: CASE EVENT DATE: 201807
